FAERS Safety Report 11162666 (Version 1)
Quarter: 2015Q2

REPORT INFORMATION
  Report Type: Spontaneous
  Country: US (occurrence: US)
  Receive Date: 20150604
  Receipt Date: 20150604
  Transmission Date: 20150821
  Serious: No
  Sender: FDA-Public Use
  Company Number: US-SA-2015SA002288

PATIENT
  Age: 70 Year
  Sex: Female

DRUGS (2)
  1. SOLOSTAR [Concomitant]
     Active Substance: DEVICE
  2. LANTUS SOLOSTAR [Suspect]
     Active Substance: INSULIN GLARGINE
     Indication: TYPE 2 DIABETES MELLITUS
     Dosage: 2 INJECTIONS OF 21 UNITS IN THE MORNING AND 2 INJECTIONS OF 19 UNITS IN THE EVENING
     Route: 065
     Dates: start: 2011

REACTIONS (6)
  - Influenza [Unknown]
  - Drug administration error [Unknown]
  - Fatigue [Unknown]
  - Injection site haemorrhage [Unknown]
  - Visual impairment [Unknown]
  - Condition aggravated [Unknown]

NARRATIVE: CASE EVENT DATE: 201410
